FAERS Safety Report 9726069 (Version 1)
Quarter: 2013Q4

REPORT INFORMATION
  Report Type: Spontaneous
  Country: IT (occurrence: IT)
  Receive Date: 20131203
  Receipt Date: 20131203
  Transmission Date: 20140711
  Serious: Yes (Hospitalization)
  Sender: FDA-Public Use
  Company Number: IT-ASTRAZENECA-2013SE74201

PATIENT
  Age: 31350 Day
  Sex: Female

DRUGS (4)
  1. ZESTORETIC [Suspect]
     Indication: HYPERTENSION
     Dosage: 20MG + 12.5 MG, DAILY
     Route: 048
     Dates: start: 20110101, end: 20130821
  2. PANTOPRAZOLE [Concomitant]
     Route: 048
  3. MADOPAR [Concomitant]
     Dosage: 200MG + 50MG DIVISIBLE  TABLET
     Route: 048
  4. CORDARONE [Concomitant]
     Indication: ATRIAL FIBRILLATION
     Route: 048

REACTIONS (2)
  - Chest pain [Recovered/Resolved]
  - Hypokalaemia [Recovered/Resolved]
